FAERS Safety Report 23640153 (Version 1)
Quarter: 2024Q1

REPORT INFORMATION
  Report Type: Spontaneous
  Country: IL (occurrence: IL)
  Receive Date: 20240317
  Receipt Date: 20240317
  Transmission Date: 20240410
  Serious: Yes (Life-Threatening, Hospitalization, Other)
  Sender: FDA-Public Use
  Company Number: IL-MLMSERVICE-20240229-4855858-1

PATIENT
  Age: 39 Year
  Sex: Female

DRUGS (4)
  1. MYCOPHENOLATE MOFETIL [Suspect]
     Active Substance: MYCOPHENOLATE MOFETIL
     Indication: Immunosuppressant drug therapy
  2. TACROLIMUS [Suspect]
     Active Substance: TACROLIMUS
     Indication: Immunosuppressant drug therapy
  3. VALGANCICLOVIR [Concomitant]
     Active Substance: VALGANCICLOVIR
  4. SULFAMETHOXAZOLE\TRIMETHOPRIM [Concomitant]
     Active Substance: SULFAMETHOXAZOLE\TRIMETHOPRIM

REACTIONS (17)
  - Disseminated aspergillosis [Unknown]
  - Intra-abdominal haematoma [Unknown]
  - Peripheral ischaemia [Unknown]
  - Klebsiella infection [Unknown]
  - Arteritis infective [Unknown]
  - Escherichia infection [Unknown]
  - Pathogen resistance [Unknown]
  - Enterococcal infection [Unknown]
  - Necrosis of artery [Unknown]
  - Shock haemorrhagic [Unknown]
  - Iliac artery perforation [Unknown]
  - Arterial haemorrhage [Unknown]
  - Vasculitis [Unknown]
  - Renal graft infection [Unknown]
  - Wound haematoma [Unknown]
  - Retroperitoneal haematoma [Unknown]
  - Stenotrophomonas infection [Unknown]
